FAERS Safety Report 25667648 (Version 2)
Quarter: 2025Q3

REPORT INFORMATION
  Report Type: Report from Study
  Country: EU (occurrence: EU)
  Receive Date: 20250811
  Receipt Date: 20250909
  Transmission Date: 20251021
  Serious: Yes (Hospitalization)
  Sender: ABBVIE
  Company Number: EU-ABBVIE-6403344

PATIENT
  Age: 24 Year
  Sex: Female
  Weight: 104.2 kg

DRUGS (9)
  1. ATOGEPANT [Suspect]
     Active Substance: ATOGEPANT
     Indication: Migraine with aura
     Route: 048
     Dates: start: 20250803
  2. NAPROXEN [Concomitant]
     Active Substance: NAPROXEN
     Indication: Migraine
     Route: 048
     Dates: start: 2025
  3. QUETIAPINE [Concomitant]
     Active Substance: QUETIAPINE
     Indication: Borderline personality disorder
     Route: 048
     Dates: start: 20221120
  4. BISOPROLOL [Concomitant]
     Active Substance: BISOPROLOL
     Indication: Migraine
     Route: 048
     Dates: start: 2023
  5. pantomed [Concomitant]
     Indication: Prophylaxis
     Route: 048
     Dates: start: 20230113
  6. VENLAFAXINE [Concomitant]
     Active Substance: VENLAFAXINE HYDROCHLORIDE
     Indication: Migraine
     Route: 048
     Dates: start: 20250314
  7. MIRTAZAPINE [Concomitant]
     Active Substance: MIRTAZAPINE
     Indication: Product used for unknown indication
     Route: 048
     Dates: start: 20240331
  8. RIBOFLAVIN [Concomitant]
     Active Substance: RIBOFLAVIN
     Indication: Migraine
     Route: 048
     Dates: start: 2025
  9. Minipress prazosine [Concomitant]
     Indication: Migraine
     Route: 048
     Dates: start: 20250429

REACTIONS (3)
  - Psychogenic seizure [Recovered/Resolved]
  - Dysphagia [Recovered/Resolved]
  - Migraine [Recovered/Resolved]

NARRATIVE: CASE EVENT DATE: 20250804
